FAERS Safety Report 6443334-1 (Version None)
Quarter: 2009Q4

REPORT INFORMATION
  Report Type: 
  Country: None (occurrence: None)
  Receive Date: 20091112
  Receipt Date: 20091030
  Transmission Date: 20100525
  Serious: Yes (Other)
  Sender: FDA-Public Use
  Company Number: ABTXI-09-0464

PATIENT
  Age: 53 Year
  Sex: Female
  Weight: 64 kg

DRUGS (2)
  1. ABRAXANE [Suspect]
     Indication: BREAST CANCER METASTATIC
     Dosage: 7 CYCLES 20 DOSES (180 MG, WEEKLY X  3 OFF 1 WEEK), INTRAVENOUS
     Route: 042
     Dates: start: 20090317, end: 20090914
  2. TAXOTERE [Concomitant]

REACTIONS (1)
  - PLEURAL EFFUSION [None]
